FAERS Safety Report 13544373 (Version 1)
Quarter: 2017Q2

REPORT INFORMATION
  Report Type: Report from Study
  Country: US (occurrence: US)
  Receive Date: 20170515
  Receipt Date: 20170515
  Transmission Date: 20170830
  Serious: Yes (Other)
  Sender: FDA-Public Use
  Company Number: US-BAUSCH-BL-2017-014459

PATIENT
  Age: 77 Year
  Sex: Female

DRUGS (5)
  1. BESIVANCE [Suspect]
     Active Substance: BESIFLOXACIN
     Indication: POSTOPERATIVE CARE
     Route: 047
     Dates: start: 201704
  2. PROLENSA [Suspect]
     Active Substance: BROMFENAC SODIUM
     Indication: PREOPERATIVE CARE
     Route: 047
     Dates: start: 20170401, end: 201704
  3. PROLENSA [Suspect]
     Active Substance: BROMFENAC SODIUM
     Indication: POSTOPERATIVE CARE
     Route: 047
     Dates: start: 201704
  4. BESIVANCE [Suspect]
     Active Substance: BESIFLOXACIN
     Indication: PREOPERATIVE CARE
     Route: 047
     Dates: start: 20170401, end: 201704
  5. LOTEMAX [Suspect]
     Active Substance: LOTEPREDNOL ETABONATE
     Indication: POSTOPERATIVE CARE
     Route: 047
     Dates: start: 2017

REACTIONS (2)
  - Intentional product use issue [Unknown]
  - Cystoid macular oedema [Unknown]

NARRATIVE: CASE EVENT DATE: 2017
